FAERS Safety Report 18545939 (Version 2)
Quarter: 2025Q4

REPORT INFORMATION
  Report Type: Spontaneous
  Country: US (occurrence: US)
  Receive Date: 20201125
  Receipt Date: 20251023
  Transmission Date: 20260117
  Serious: Yes (Life-Threatening, Hospitalization)
  Sender: MYLAN
  Company Number: US-MYLANLABS-2020M1097367

PATIENT
  Age: 74 Year
  Sex: Male
  Weight: 75 kg

DRUGS (16)
  1. VENLAFAXINE [Suspect]
     Active Substance: VENLAFAXINE HYDROCHLORIDE
     Indication: Depressive symptom
     Dosage: 37.5 MILLIGRAM, BID
     Dates: start: 201607, end: 201802
  2. VENLAFAXINE [Suspect]
     Active Substance: VENLAFAXINE HYDROCHLORIDE
     Indication: Migraine prophylaxis
  3. QUETIAPINE [Suspect]
     Active Substance: QUETIAPINE
     Indication: Aggression
     Dosage: 25 MILLIGRAM, BID
     Dates: end: 20180212
  4. QUETIAPINE [Suspect]
     Active Substance: QUETIAPINE
     Dosage: 50 MILLIGRAM, BID AFTER STOPPING THE DRUG ON 12 FEBRUARY 2018?
     Dates: start: 201903
  5. TRAZODONE [Suspect]
     Active Substance: TRAZODONE HYDROCHLORIDE
     Indication: Depression
     Dosage: 50 MILLIGRAM THE MAN RECEIVED TRAZODONE AS NEEDED (TAKEN 2 TO 3TIMES PER WEEK)
  6. DIVALPROEX SODIUM [Suspect]
     Active Substance: DIVALPROEX SODIUM
     Indication: Migraine prophylaxis
     Dosage: 125 MILLIGRAM, BID
     Dates: start: 201605, end: 201801
  7. DIVALPROEX SODIUM [Suspect]
     Active Substance: DIVALPROEX SODIUM
     Indication: Mood swings
     Dosage: 250 MILLIGRAM, BID
     Dates: start: 20180131
  8. DONEPEZIL [Suspect]
     Active Substance: DONEPEZIL
     Indication: Agitation
     Dosage: 10 MILLIGRAM, QD
     Dates: start: 2016
  9. DONEPEZIL [Suspect]
     Active Substance: DONEPEZIL
     Indication: Aggression
  10. INSULIN GLARGINE [Concomitant]
     Active Substance: INSULIN GLARGINE
     Indication: Type 2 diabetes mellitus
     Dosage: UNK, QD, THE MAN RECEIVED 15 UNIT OF INSULIN-GLARGINE
  11. MELATONIN [Concomitant]
     Active Substance: MELATONIN
     Indication: Insomnia
     Dosage: 3 MILLIGRAM, QD, MAN RECEIVED MELATONIN ONCE PER EVENING
  12. PRAVASTATIN [Concomitant]
     Active Substance: PRAVASTATIN
     Indication: Product used for unknown indication
     Dosage: 20 MILLIGRAM, QD, EVENING
  13. METFORMIN [Concomitant]
     Active Substance: METFORMIN HYDROCHLORIDE
     Indication: Type 2 diabetes mellitus
     Dosage: 1000 MILLIGRAM, BID
  14. TAMSULOSIN [Concomitant]
     Active Substance: TAMSULOSIN
     Indication: Product used for unknown indication
     Dosage: 0.4 MILLIGRAM, QD MAN RECEIVED TAMSULOSIN ONCE PER EVENING
  15. MEMANTINE [Concomitant]
     Active Substance: MEMANTINE
     Indication: Behavioural therapy
     Dosage: 5 MILLIGRAM
  16. MAGNESIUM OXIDE [Concomitant]
     Active Substance: MAGNESIUM OXIDE
     Indication: Product used for unknown indication
     Dosage: 400 MILLIGRAM, QD

REACTIONS (2)
  - Serotonin syndrome [Recovered/Resolved]
  - Off label use [Unknown]

NARRATIVE: CASE EVENT DATE: 20180212
